FAERS Safety Report 6467788-X (Version None)
Quarter: 2009Q4

REPORT INFORMATION
  Report Type: 
  Country: None (occurrence: None)
  Receive Date: 20091202
  Receipt Date: 20091120
  Transmission Date: 20100525
  Serious: Yes (Other)
  Sender: FDA-Public Use
  Company Number: US-WYE-H12283509

PATIENT
  Age: 53 Year
  Sex: Female

DRUGS (1)
  1. PRISTIQ [Suspect]
     Indication: DEPRESSION
     Route: 048
     Dates: start: 20090501, end: 20090801

REACTIONS (8)
  - CONSTIPATION [None]
  - DRUG WITHDRAWAL SYNDROME [None]
  - DYSPNOEA [None]
  - FAECES HARD [None]
  - FEELING HOT [None]
  - HAEMATOCHEZIA [None]
  - HEART RATE INCREASED [None]
  - HYPERHIDROSIS [None]
